FAERS Safety Report 10953252 (Version 1)
Quarter: 2015Q1

REPORT INFORMATION
  Report Type: Spontaneous
  Country: JP (occurrence: JP)
  Receive Date: 20150325
  Receipt Date: 20150325
  Transmission Date: 20150721
  Serious: Yes (Other)
  Sender: FDA-Public Use
  Company Number: JP-PFIZER INC-2015097410

PATIENT
  Age: 64 Year
  Sex: Female
  Weight: 45 kg

DRUGS (14)
  1. LYRICA [Suspect]
     Active Substance: PREGABALIN
     Indication: NEUROPATHY PERIPHERAL
     Dosage: 75 MG, DAILY
     Route: 048
     Dates: start: 20150120, end: 20150202
  2. ALOXI [Concomitant]
     Active Substance: PALONOSETRON HYDROCHLORIDE
  3. EMEND [Concomitant]
     Active Substance: APREPITANT
  4. GLUCOSE [Concomitant]
     Active Substance: DEXTROSE
  5. ELPLAT [Concomitant]
     Active Substance: OXALIPLATIN
  6. ISOVORIN [Concomitant]
     Active Substance: LEUCOVORIN CALCIUM
  7. PRIMPERAN [Concomitant]
     Active Substance: METOCLOPRAMIDE HYDROCHLORIDE
  8. MAGMITT [Concomitant]
     Active Substance: MAGNESIUM OXIDE
  9. DECADRON [Concomitant]
     Active Substance: DEXAMETHASONE
  10. DEXART [Concomitant]
     Active Substance: DEXAMETHASONE SODIUM PHOSPHATE
  11. LYRICA [Suspect]
     Active Substance: PREGABALIN
     Dosage: 150 MG, DAILY
     Route: 048
     Dates: start: 20150203, end: 20150216
  12. ETIZOLAM [Concomitant]
     Active Substance: ETIZOLAM
  13. FERROUS SULFATE [Concomitant]
     Active Substance: FERROUS SULFATE\FERROUS SULFATE, DRIED
  14. 5-FU [Concomitant]
     Active Substance: FLUOROURACIL

REACTIONS (1)
  - Hepatic function abnormal [Recovered/Resolved]

NARRATIVE: CASE EVENT DATE: 20150210
